FAERS Safety Report 8304359-4 (Version None)
Quarter: 2012Q2

REPORT INFORMATION
  Report Type: 
  Country: None (occurrence: None)
  Receive Date: 20120423
  Receipt Date: 20120416
  Transmission Date: 20120825
  Serious: Yes (Hospitalization)
  Sender: FDA-Public Use
  Company Number: US-BAYER-2012-026128

PATIENT
  Age: 18 Year
  Sex: Female

DRUGS (3)
  1. CONCERTA [Concomitant]
     Dosage: 54 MG, TAKE ONE DAILY EACH MORNING
     Dates: start: 20090808, end: 20100111
  2. YAZ [Suspect]
     Dosage: UNK
     Dates: start: 20090101
  3. YASMIN [Suspect]
     Dosage: UNK

REACTIONS (3)
  - INJURY [None]
  - PAIN [None]
  - PULMONARY EMBOLISM [None]
